FAERS Safety Report 5723037-9 (Version None)
Quarter: 2008Q2

REPORT INFORMATION
  Report Type: 
  Country: None (occurrence: None)
  Receive Date: 20080430
  Receipt Date: 20080423
  Transmission Date: 20081010
  Serious: Yes (Life-Threatening, Other)
  Sender: FDA-Public Use
  Company Number: JP-WYE-H01090407

PATIENT
  Sex: Male
  Weight: 67 kg

DRUGS (12)
  1. MYLOTARG [Suspect]
     Indication: ACUTE MYELOID LEUKAEMIA
     Route: 041
     Dates: start: 20070616, end: 20070616
  2. ADONA [Concomitant]
     Indication: ACUTE MYELOID LEUKAEMIA
     Route: 041
     Dates: start: 20070430, end: 20070627
  3. ROPION [Concomitant]
     Route: 042
     Dates: start: 20070521, end: 20070628
  4. TRANSAMIN [Concomitant]
     Indication: ACUTE MYELOID LEUKAEMIA
     Route: 041
     Dates: start: 20070502, end: 20070627
  5. MIDAZOLAM HCL [Concomitant]
     Indication: ENDOTRACHEAL INTUBATION
     Route: 041
     Dates: start: 20070619, end: 20070628
  6. PRODIF [Concomitant]
     Route: 042
     Dates: start: 20070405, end: 20070627
  7. GRAN [Concomitant]
     Indication: ACUTE MYELOID LEUKAEMIA
     Route: 041
     Dates: start: 20070406, end: 20070627
  8. HYDROCORTONE [Concomitant]
     Indication: PROPHYLAXIS
     Route: 042
     Dates: start: 20070617, end: 20070628
  9. TARGOCID [Concomitant]
     Route: 041
     Dates: start: 20070618, end: 20070627
  10. KETALAR [Concomitant]
     Indication: ENDOTRACHEAL INTUBATION
     Route: 042
     Dates: start: 20070619, end: 20070628
  11. FAMOTIDINE [Concomitant]
     Indication: PROPHYLAXIS
     Route: 042
     Dates: start: 20070418, end: 20070628
  12. CIPROFLOXACIN [Concomitant]
     Route: 041
     Dates: start: 20070517, end: 20070627

REACTIONS (3)
  - FEBRILE NEUTROPENIA [None]
  - PULMONARY ALVEOLAR HAEMORRHAGE [None]
  - VENOOCCLUSIVE LIVER DISEASE [None]
